FAERS Safety Report 6703452-7 (Version None)
Quarter: 2010Q2

REPORT INFORMATION
  Report Type: 
  Country: None (occurrence: None)
  Receive Date: 20100428
  Receipt Date: 20100421
  Transmission Date: 20101027
  Serious: Yes (Hospitalization, Other)
  Sender: FDA-Public Use
  Company Number: 010509

PATIENT
  Age: 60 Year
  Sex: Female

DRUGS (12)
  1. KEPPRA [Suspect]
     Indication: EPILEPSY
     Dosage: (500 MG BID INTRAVENOUS)
     Route: 042
     Dates: start: 20100311, end: 20100313
  2. DORIBAX [Suspect]
     Indication: SEPSIS
     Dosage: (500 MG TID INTRAVENOUS)
     Route: 042
     Dates: start: 20100311, end: 20100313
  3. CIPROFLOXACINE (CIPROFLOXACINE) [Suspect]
     Dosage: (500 MG BID ORAL)
     Route: 048
     Dates: start: 20100302, end: 20100313
  4. ZYVOX [Suspect]
     Dosage: (600 MG BID ORAL)
     Route: 048
     Dates: start: 20100306, end: 20100313
  5. POTASSIUM CHLORIDE [Concomitant]
  6. RIVOTRIL [Concomitant]
  7. BACTRIM [Concomitant]
  8. CELLCEPT [Concomitant]
  9. CORTANCYL [Concomitant]
  10. NEXIUM [Concomitant]
  11. CACIT VITAMIN D3 [Concomitant]
  12. COLCHIMAX [Concomitant]

REACTIONS (16)
  - ACUTE PULMONARY OEDEMA [None]
  - AGITATION [None]
  - AMNESIA [None]
  - ATAXIA [None]
  - BALANCE DISORDER [None]
  - CONFUSIONAL STATE [None]
  - COUGH [None]
  - DEPRESSION [None]
  - DYSARTHRIA [None]
  - EJECTION FRACTION DECREASED [None]
  - GRAND MAL CONVULSION [None]
  - HALLUCINATION [None]
  - MEMORY IMPAIRMENT [None]
  - RASH [None]
  - SOMNOLENCE [None]
  - VENTRICULAR HYPOKINESIA [None]
